FAERS Safety Report 15602844 (Version 1)
Quarter: 2018Q4

REPORT INFORMATION
  Report Type: Spontaneous
  Country: US (occurrence: US)
  Receive Date: 20181109
  Receipt Date: 20181109
  Transmission Date: 20190205
  Serious: No
  Sender: FDA-Public Use
  Company Number: None

PATIENT
  Age: 36 Year
  Sex: Male

DRUGS (3)
  1. JULUCA [Suspect]
     Active Substance: DOLUTEGRAVIR SODIUM\RILPIVIRINE HYDROCHLORIDE
     Indication: HIV INFECTION
     Route: 048
     Dates: start: 20181015, end: 20181109
  2. TRAZODONE 150MG [Concomitant]
     Dates: start: 20180319
  3. GUANFACINE 1MG [Concomitant]
     Active Substance: GUANFACINE
     Dates: start: 20181012

REACTIONS (3)
  - Musculoskeletal stiffness [None]
  - Dyspepsia [None]
  - Muscle tightness [None]

NARRATIVE: CASE EVENT DATE: 20181109
